FAERS Safety Report 22896350 (Version 3)
Quarter: 2023Q4

REPORT INFORMATION
  Report Type: Spontaneous
  Country: US (occurrence: US)
  Receive Date: 20230901
  Receipt Date: 20231114
  Transmission Date: 20240110
  Serious: No
  Sender: FDA-Public Use
  Company Number: US-PFIZER INC-PV202300147855

PATIENT
  Age: 66 Year
  Sex: Female
  Weight: 99.773 kg

DRUGS (5)
  1. TIKOSYN [Suspect]
     Active Substance: DOFETILIDE
     Indication: Heart rate abnormal
     Dosage: 500 MG, 2X/DAY
     Dates: start: 2021
  2. ELIQUIS [Concomitant]
     Active Substance: APIXABAN
     Dosage: UNK
  3. POTASSIUM [Concomitant]
     Active Substance: POTASSIUM
     Dosage: UNK
  4. MAGNESIUM [Concomitant]
     Active Substance: MAGNESIUM
     Dosage: UNK
  5. RANOLAZINE [Concomitant]
     Active Substance: RANOLAZINE
     Dosage: UNK

REACTIONS (2)
  - Hypersensitivity [Not Recovered/Not Resolved]
  - Throat clearing [Unknown]
